FAERS Safety Report 5000961-6 (Version None)
Quarter: 2006Q2

REPORT INFORMATION
  Report Type: 
  Country: None (occurrence: None)
  Receive Date: 20060512
  Receipt Date: 20060323
  Transmission Date: 20061013
  Serious: Yes (Death, Hospitalization)
  Sender: FDA-Public Use
  Company Number: FR-SANOFI-SYNTHELABO-A02200600807

PATIENT
  Sex: Female
  Weight: 49 kg

DRUGS (3)
  1. ELOXATIN [Suspect]
     Indication: PANCREATIC CARCINOMA METASTATIC
     Route: 042
     Dates: start: 20060307, end: 20060307
  2. CPT11 [Concomitant]
     Indication: PANCREATIC CARCINOMA METASTATIC
     Dosage: 130 MG
     Route: 042
     Dates: start: 20060307, end: 20060307
  3. FLUOROURACIL [Concomitant]
     Indication: PANCREATIC CARCINOMA METASTATIC
     Dosage: UNK
     Route: 042
     Dates: start: 20060307, end: 20060307

REACTIONS (2)
  - HAEMOLYTIC ANAEMIA [None]
  - THROMBOCYTOPENIA [None]
